FAERS Safety Report 7360248-3 (Version None)
Quarter: 2011Q1

REPORT INFORMATION
  Report Type: 
  Country: None (occurrence: None)
  Receive Date: 20110310
  Receipt Date: 20110223
  Transmission Date: 20110831
  Serious: Yes (Death, Hospitalization, Other)
  Sender: FDA-Public Use
  Company Number: 2010AC000455

PATIENT
  Age: 89 Year
  Sex: Female
  Weight: 85.2762 kg

DRUGS (24)
  1. LOPRESSOR [Concomitant]
  2. METOPROLOL TARTRATE [Concomitant]
  3. PREDNISONE [Concomitant]
  4. COLACE [Concomitant]
  5. DIGOXIN [Suspect]
     Indication: PRODUCT USED FOR UNKNOWN INDICATION
     Dosage: .250 MG; Q4H; IV
     Route: 042
     Dates: start: 20080323, end: 20080323
  6. DONEPEZIL HCL [Concomitant]
  7. SENNA [Concomitant]
  8. DIGOXIN [Suspect]
     Indication: PRODUCT USED FOR UNKNOWN INDICATION
     Dosage: 0.125 MG; QOD; PO
     Route: 048
     Dates: start: 20080327, end: 20080412
  9. WARFARIN SODIUM [Concomitant]
  10. LISINOPRIL [Concomitant]
  11. BENADRYL [Concomitant]
  12. PROTONIX [Concomitant]
  13. FERRLECIT [Concomitant]
  14. FUROSEMIDE [Concomitant]
  15. AMIODARONE HCL [Concomitant]
  16. ZITHROMAX [Concomitant]
  17. ALLOPURINOL [Concomitant]
  18. ASPIRIN [Concomitant]
  19. CLARITIN [Concomitant]
  20. CARDIZEM [Concomitant]
  21. LOVENOX [Concomitant]
  22. MULTI-VITAMIN [Concomitant]
  23. ASCORBIC ACID [Concomitant]
  24. COLCHICINE [Concomitant]

REACTIONS (30)
  - HYPOACUSIS [None]
  - HYPOTENSION [None]
  - VENTRICULAR EXTRASYSTOLES [None]
  - AORTIC STENOSIS [None]
  - LOSS OF CONSCIOUSNESS [None]
  - CELLULITIS [None]
  - GOUT [None]
  - CONSTIPATION [None]
  - DEHYDRATION [None]
  - SOCIAL AVOIDANT BEHAVIOUR [None]
  - TOXICITY TO VARIOUS AGENTS [None]
  - REFUSAL OF TREATMENT BY PATIENT [None]
  - INJURY [None]
  - ECONOMIC PROBLEM [None]
  - CARDIAC FAILURE CONGESTIVE [None]
  - CEREBRAL ATROPHY [None]
  - CONVULSION [None]
  - PULMONARY OEDEMA [None]
  - HYPOKALAEMIA [None]
  - MYOCARDIAL INFARCTION [None]
  - CONFUSIONAL STATE [None]
  - ACUTE CORONARY SYNDROME [None]
  - PAIN [None]
  - EMOTIONAL DISORDER [None]
  - ATRIAL FIBRILLATION [None]
  - DEMENTIA [None]
  - SKIN ULCER [None]
  - RENAL FAILURE ACUTE [None]
  - HAEMOGLOBIN DECREASED [None]
  - MICROANGIOPATHY [None]
